FAERS Safety Report 9182689 (Version 3)
Quarter: 2014Q2

REPORT INFORMATION
  Report Type: Spontaneous
  Country: US (occurrence: US)
  Receive Date: 20121031
  Receipt Date: 20140613
  Transmission Date: 20141212
  Serious: Yes (Hospitalization, Other)
  Sender: FDA-Public Use
  Company Number: US-BAYER-2012-113600

PATIENT
  Age: 22 Year
  Sex: Female

DRUGS (3)
  1. YASMIN [Suspect]
     Dosage: UNK
     Dates: start: 200102, end: 2002
  2. YASMIN [Suspect]
     Dosage: UNK
     Dates: start: 20020724, end: 20100426
  3. YAZ [Suspect]
     Dosage: UNK
     Dates: start: 200808, end: 200908

REACTIONS (23)
  - Cholelithiasis [None]
  - Cholecystitis chronic [None]
  - Nephrolithiasis [None]
  - Nephrotic syndrome [None]
  - Tachycardia [None]
  - Injury [None]
  - Pain [None]
  - Emotional distress [None]
  - Abdominal pain [None]
  - Muscle spasms [None]
  - Muscle spasms [None]
  - Fluid retention [None]
  - Swelling [None]
  - Skin warm [None]
  - Pyrexia [None]
  - Abnormal weight gain [None]
  - Hormone level abnormal [None]
  - Mood swings [None]
  - Blood albumin decreased [None]
  - Blood viscosity increased [None]
  - General physical health deterioration [None]
  - Anxiety [None]
  - Pain [None]
